FAERS Safety Report 8450114-4 (Version None)
Quarter: 2012Q2

REPORT INFORMATION
  Report Type: 
  Country: None (occurrence: None)
  Receive Date: 20120620
  Receipt Date: 20120612
  Transmission Date: 20120825
  Serious: Yes (Other)
  Sender: FDA-Public Use
  Company Number: US-US-EMD SERONO, INC.-7140199

PATIENT

DRUGS (1)
  1. NOVANTRONE [Suspect]
     Indication: MULTIPLE SCLEROSIS

REACTIONS (6)
  - CONTUSION [None]
  - BONE PAIN [None]
  - INFECTION [None]
  - CARDIAC FAILURE [None]
  - PALLOR [None]
  - RASH [None]
